FAERS Safety Report 9774435 (Version 1)
Quarter: 2013Q4

REPORT INFORMATION
  Report Type: Report from Study
  Country: US (occurrence: US)
  Receive Date: 20131220
  Receipt Date: 20131220
  Transmission Date: 20140711
  Serious: Yes (Other)
  Sender: FDA-Public Use
  Company Number: US-ROCHE-1320944

PATIENT
  Sex: Female

DRUGS (4)
  1. LUCENTIS [Suspect]
     Indication: EYE HAEMORRHAGE
     Dosage: RECENT INJECTION IN RIGHT EYE ON 25/NOV/2013
     Route: 050
  2. XARELTO [Concomitant]
     Indication: ANTICOAGULANT THERAPY
  3. LIPITOR [Concomitant]
  4. BABY ASPIRIN [Concomitant]
     Route: 065

REACTIONS (2)
  - Blindness [Not Recovered/Not Resolved]
  - Visual acuity reduced [Not Recovered/Not Resolved]
